FAERS Safety Report 25239659 (Version 1)
Quarter: 2025Q2

REPORT INFORMATION
  Report Type: Spontaneous
  Country: US (occurrence: None)
  Receive Date: 20250425
  Receipt Date: 20250425
  Transmission Date: 20250716
  Serious: Yes (Other)
  Sender: FDA-CTU
  Company Number: None

PATIENT
  Age: 76 Year
  Sex: Male
  Weight: 67.7 kg

DRUGS (2)
  1. CAPECITABINE [Suspect]
     Active Substance: CAPECITABINE
     Indication: Pancreatic carcinoma
     Dosage: 100 MG BID ORAL
     Route: 048
     Dates: start: 20241119
  2. CAPECITABINE [Suspect]
     Active Substance: CAPECITABINE
     Indication: Pancreatic carcinoma
     Dosage: 300 MG BID ORAL ?
     Route: 048
     Dates: start: 20241119

REACTIONS (6)
  - Pain in extremity [None]
  - Pain in extremity [None]
  - Burning sensation [None]
  - Feeling hot [None]
  - Pruritus [None]
  - Sensory disturbance [None]

NARRATIVE: CASE EVENT DATE: 20250417
